FAERS Safety Report 9130745 (Version 1)
Quarter: 2013Q1

REPORT INFORMATION
  Report Type: Spontaneous
  Country: US (occurrence: US)
  Receive Date: 20130301
  Receipt Date: 20130301
  Transmission Date: 20140127
  Serious: Yes (Other)
  Sender: FDA-Public Use
  Company Number: PHEH2013US004813

PATIENT
  Sex: Female

DRUGS (13)
  1. FANAPT [Suspect]
     Dosage: 6 MG, BID
     Route: 048
  2. LAMICTAL [Concomitant]
     Dosage: UNK UKN, UNK
  3. CELEXA [Concomitant]
     Dosage: UNK UKN, UNK
  4. XANAX [Concomitant]
     Dosage: UNK UKN, UNK
  5. SIMVASTIN [Concomitant]
     Dosage: UNK UKN, UNK
  6. WELLBUTRIN [Concomitant]
     Dosage: UNK UKN, UNK
  7. LISINOPRIL [Concomitant]
     Dosage: UNK UKN, UNK
  8. PRAZOSIN [Concomitant]
     Dosage: UNK UKN, UNK
  9. INSULIN [Concomitant]
     Dosage: UNK UKN, UNK
  10. TOPUMATE [Concomitant]
     Dosage: UNK UKN, UNK
  11. TEMAZEPAM [Concomitant]
     Dosage: UNK UKN, UNK
  12. DIFLUCAN [Concomitant]
     Dosage: UNK UKN, UNK
  13. VIIBRYD [Concomitant]
     Dosage: UNK UKN, UNK

REACTIONS (20)
  - Hypertension [Unknown]
  - Bipolar I disorder [Unknown]
  - Endometrial disorder [Unknown]
  - Gallbladder disorder [Unknown]
  - Umbilical hernia [Unknown]
  - Staphylococcal infection [Unknown]
  - Obesity [Unknown]
  - Fibromyalgia [Unknown]
  - Vaginal infection [Unknown]
  - Vulvovaginal pain [Unknown]
  - Asthma [Unknown]
  - Dyspnoea [Unknown]
  - Type 2 diabetes mellitus [Unknown]
  - Anxiety disorder [Unknown]
  - Skin lesion [Unknown]
  - Pain [Unknown]
  - Post-traumatic stress disorder [Unknown]
  - Sleep apnoea syndrome [Unknown]
  - Restless legs syndrome [Unknown]
  - Dizziness [Unknown]
